FAERS Safety Report 8282349-8 (Version None)
Quarter: 2012Q2

REPORT INFORMATION
  Report Type: 
  Country: None (occurrence: None)
  Receive Date: 20120413
  Receipt Date: 20120403
  Transmission Date: 20120825
  Serious: Yes (Other)
  Sender: FDA-Public Use
  Company Number: US-JNJFOC-20120206017

PATIENT
  Sex: Female
  Weight: 71.67 kg

DRUGS (10)
  1. PRILOSEC [Concomitant]
  2. MELOXICAM [Concomitant]
  3. LISINOPRIL [Concomitant]
  4. REMICADE [Suspect]
     Indication: COLITIS ULCERATIVE
     Dosage: TOTAL OF 3 DOSES
     Route: 042
     Dates: start: 20120209
  5. ALL OTHER THERAPEUTIC PRODUCTS [Concomitant]
  6. METFORMIN HCL [Concomitant]
  7. SULFASALAZINE [Concomitant]
     Indication: COLITIS ULCERATIVE
  8. FOLIC ACID [Concomitant]
  9. REMICADE [Suspect]
     Dosage: 0, 2, AND 6 WEEKS AND THEN ONCE EVERY 8 WEEKS
     Route: 042
     Dates: start: 20111216
  10. SYNTHROID [Concomitant]

REACTIONS (1)
  - BREAST CANCER [None]
